FAERS Safety Report 7141914-1 (Version None)
Quarter: 2010Q4

REPORT INFORMATION
  Report Type: 
  Country: None (occurrence: None)
  Receive Date: 20101203
  Receipt Date: 20101203
  Transmission Date: 20110411
  Serious: Yes (Death)
  Sender: FDA-Public Use
  Company Number: None

PATIENT
  Age: 15 Year
  Sex: Female
  Weight: 70.3075 kg

DRUGS (2)
  1. ARRI [Suspect]
     Indication: CONTRACEPTION
     Dosage: 1 PER DAY
     Dates: start: 20100701, end: 20100816
  2. ARRI [Suspect]
     Indication: DYSMENORRHOEA
     Dosage: 1 PER DAY
     Dates: start: 20100701, end: 20100816

REACTIONS (1)
  - PULMONARY EMBOLISM [None]
